FAERS Safety Report 6784463-2 (Version None)
Quarter: 2010Q2

REPORT INFORMATION
  Report Type: 
  Country: None (occurrence: None)
  Receive Date: 20100622
  Receipt Date: 20100614
  Transmission Date: 20101027
  Serious: Yes (Other)
  Sender: FDA-Public Use
  Company Number: US-AMGEN-QUU418230

PATIENT
  Sex: Female

DRUGS (7)
  1. ARANESP [Suspect]
     Indication: RENAL FAILURE CHRONIC
     Dates: start: 20090105
  2. ATENOLOL [Concomitant]
  3. PREMARIN [Concomitant]
  4. CALCITRIOL [Concomitant]
  5. LAMICTAL [Concomitant]
  6. SYNTHROID [Concomitant]
  7. LASIX [Concomitant]

REACTIONS (5)
  - CONVULSION [None]
  - FALL [None]
  - FATIGUE [None]
  - HAEMOGLOBIN DECREASED [None]
  - LOSS OF CONSCIOUSNESS [None]
